FAERS Safety Report 22189617 (Version 2)
Quarter: 2024Q4

REPORT INFORMATION
  Report Type: Spontaneous
  Country: BR (occurrence: BR)
  Receive Date: 20230410
  Receipt Date: 20241010
  Transmission Date: 20250114
  Serious: No
  Sender: CELLTRION
  Company Number: BR-CELLTRION INC.-2023BR006836

PATIENT

DRUGS (8)
  1. TRUXIMA [Suspect]
     Active Substance: RITUXIMAB-ABBS
     Indication: Systemic scleroderma
     Dosage: 2 AMPOLUES EVERY 6 MONTHS
     Route: 042
     Dates: start: 202304
  2. TRUXIMA [Suspect]
     Active Substance: RITUXIMAB-ABBS
     Dosage: 2 AMPOLUES EVERY 6 MONTHS (FOURTH INFUSION)
     Route: 042
     Dates: start: 20240413
  3. PREDNISONE [Concomitant]
     Active Substance: PREDNISONE
     Indication: Systemic lupus erythematosus
     Dosage: 1 PILL PER DAY
     Route: 048
     Dates: start: 201911
  4. HYDROXYCHLOROQUINE [Concomitant]
     Active Substance: HYDROXYCHLOROQUINE
     Indication: Systemic lupus erythematosus
     Dosage: 1 TABLET A DAY
     Route: 048
     Dates: start: 201911
  5. MYCOPHENOLIC ACID [Concomitant]
     Active Substance: MYCOPHENOLIC ACID
     Indication: Systemic scleroderma
     Dosage: 2 PILLS PER DAY
     Route: 048
     Dates: start: 202011
  6. MYCOPHENOLIC ACID [Concomitant]
     Active Substance: MYCOPHENOLIC ACID
     Indication: Systemic lupus erythematosus
  7. METHOTREXATE SODIUM [Concomitant]
     Active Substance: METHOTREXATE SODIUM
     Indication: Pain
     Dosage: 6 PILLS PER WEEK
     Route: 048
     Dates: start: 2022
  8. METHOTREXATE SODIUM [Concomitant]
     Active Substance: METHOTREXATE SODIUM
     Indication: Systemic scleroderma
     Dosage: 1 AMPOULE INJECTABLE ONCE A WEEK (ROUTE: INJECTABLE)
     Dates: start: 201911

REACTIONS (3)
  - Product distribution issue [Unknown]
  - Treatment delayed [Unknown]
  - Off label use [Unknown]
